FAERS Safety Report 20639324 (Version 1)
Quarter: 2022Q1

REPORT INFORMATION
  Report Type: Report from Study
  Country: HN (occurrence: HN)
  Receive Date: 20220326
  Receipt Date: 20220326
  Transmission Date: 20220424
  Serious: Yes (Death)
  Sender: FDA-Public Use
  Company Number: HN-NOVARTISPH-NVSC2022HN069109

PATIENT
  Age: 94 Year
  Sex: Male

DRUGS (1)
  1. EXELON [Suspect]
     Active Substance: RIVASTIGMINE TARTRATE
     Indication: Product used for unknown indication
     Dosage: 9.5 MG, Q24H, (PATCH 10)
     Route: 062
     Dates: start: 2017, end: 2020

REACTIONS (1)
  - Death [Fatal]
